FAERS Safety Report 6861409-X (Version None)
Quarter: 2010Q3

REPORT INFORMATION
  Report Type: 
  Country: None (occurrence: None)
  Receive Date: 20100716
  Receipt Date: 20100708
  Transmission Date: 20110219
  Serious: Yes (Death, Hospitalization)
  Sender: FDA-Public Use
  Company Number: 006939

PATIENT
  Sex: Male

DRUGS (1)
  1. SAMSCA [Suspect]
     Indication: HYPONATRAEMIA
     Dosage: ORAL
     Route: 048

REACTIONS (3)
  - BLOOD SODIUM INCREASED [None]
  - MEDICATION ERROR [None]
  - SEPTIC SHOCK [None]
